FAERS Safety Report 5082142-3 (Version None)
Quarter: 2006Q3

REPORT INFORMATION
  Report Type: 
  Country: None (occurrence: None)
  Receive Date: 20060817
  Receipt Date: 20060807
  Transmission Date: 20061208
  Serious: Yes (Hospitalization)
  Sender: FDA-Public Use
  Company Number: 2006UW15680

PATIENT
  Age: 81 Year
  Sex: Female
  Weight: 59 kg

DRUGS (2)
  1. CRESTOR [Suspect]
     Indication: BLOOD CHOLESTEROL INCREASED
     Route: 048
     Dates: start: 20051201, end: 20060804
  2. ATENOLOL [Concomitant]
     Indication: ANGINA PECTORIS

REACTIONS (5)
  - CONSTIPATION [None]
  - DIZZINESS [None]
  - FAECALOMA [None]
  - HYPOAESTHESIA [None]
  - TINNITUS [None]
